FAERS Safety Report 9494310 (Version 2)
Quarter: 2013Q3

REPORT INFORMATION
  Report Type: Spontaneous
  Country: FR (occurrence: FR)
  Receive Date: 20130903
  Receipt Date: 20130903
  Transmission Date: 20140515
  Serious: Yes (Death)
  Sender: FDA-Public Use
  Company Number: FR-009507513-1101FRA00074

PATIENT
  Sex: Female
  Weight: 58 kg

DRUGS (3)
  1. JANUVIA [Suspect]
     Indication: TYPE 2 DIABETES MELLITUS
     Dosage: 100 MG, QD
     Route: 048
     Dates: start: 20100423, end: 20101103
  2. DEPAKINE [Concomitant]
     Indication: EPILEPSY
     Route: 048
     Dates: start: 20080101, end: 20101103
  3. CITALOPRAM [Concomitant]
     Indication: DEPRESSION
     Dosage: 1 UNK, UNK
     Route: 048
     Dates: start: 2006, end: 20101103

REACTIONS (1)
  - General physical health deterioration [Fatal]
